FAERS Safety Report 7491600-3 (Version None)
Quarter: 2011Q2

REPORT INFORMATION
  Report Type: 
  Country: None (occurrence: None)
  Receive Date: 20110519
  Receipt Date: 20110511
  Transmission Date: 20111010
  Serious: Yes (Hospitalization)
  Sender: FDA-Public Use
  Company Number: US-JNJFOC-20110500428

PATIENT
  Sex: Female
  Weight: 56.69 kg

DRUGS (6)
  1. CHANTIX [Suspect]
     Route: 048
  2. VICODIN [Concomitant]
     Indication: BACK DISORDER
     Route: 048
  3. SOMA [Concomitant]
     Indication: BACK DISORDER
     Route: 048
  4. NICOTROL [Suspect]
     Indication: SMOKING CESSATION THERAPY
     Route: 055
  5. CHANTIX [Suspect]
     Indication: SMOKING CESSATION THERAPY
     Route: 048
  6. ZITHROMAX [Concomitant]
     Indication: PNEUMONIA
     Route: 065

REACTIONS (3)
  - VOMITING [None]
  - DEPRESSION [None]
  - GASTROINTESTINAL DISORDER [None]
